FAERS Safety Report 7850350-1 (Version None)
Quarter: 2011Q4

REPORT INFORMATION
  Report Type: 
  Country: None (occurrence: None)
  Receive Date: 20111024
  Receipt Date: 20111007
  Transmission Date: 20120403
  Serious: Yes (Other)
  Sender: FDA-Public Use
  Company Number: 1000024750

PATIENT
  Age: 27 Year
  Sex: Female

DRUGS (5)
  1. DIAZEPAM [Concomitant]
  2. RISPERIDONE [Suspect]
     Dosage: 4 MG , 6 MG( 1 IN 1 D)
  3. ESCITALOPRAM [Concomitant]
  4. CITALOPRAM HYDROBROMIDE [Suspect]
     Dosage: 10 MG , 20 MG, 40MG, 1IN 1 D
  5. ARIPIPRAZOLE (ARIPIPRAZOLE) (ARIPIPRAZOLE) [Concomitant]

REACTIONS (6)
  - PREGNANCY [None]
  - CAESAREAN SECTION [None]
  - MATERNAL EXPOSURE DURING PREGNANCY [None]
  - NEGATIVE THOUGHTS [None]
  - PSYCHOTIC DISORDER [None]
  - DEPRESSIVE SYMPTOM [None]
